FAERS Safety Report 9155162 (Version 1)
Quarter: 2013Q1

REPORT INFORMATION
  Report Type: Spontaneous
  Country: JP (occurrence: JP)
  Receive Date: 20130311
  Receipt Date: 20130311
  Transmission Date: 20140127
  Serious: Yes (Other)
  Sender: FDA-Public Use
  Company Number: JP-ASTRAZENECA-2013SE15649

PATIENT
  Age: 74 Year
  Sex: Male

DRUGS (2)
  1. MEROPEN [Suspect]
     Route: 042
     Dates: start: 20130221, end: 201302
  2. VANCOMYCIN [Concomitant]

REACTIONS (1)
  - Hepatic function abnormal [Unknown]
